FAERS Safety Report 7673555-1 (Version None)
Quarter: 2011Q3

REPORT INFORMATION
  Report Type: 
  Country: None (occurrence: None)
  Receive Date: 20110810
  Receipt Date: 20110727
  Transmission Date: 20111222
  Serious: Yes (Hospitalization)
  Sender: FDA-Public Use
  Company Number: CA-ELI_LILLY_AND_COMPANY-CA201107007721

PATIENT
  Age: 62 Year
  Sex: Female

DRUGS (11)
  1. PREDNISONE [Concomitant]
  2. LASIX [Concomitant]
  3. HYDROMORPHONE HCL [Concomitant]
  4. PANTOLOC                           /01263202/ [Concomitant]
  5. WARFARIN [Concomitant]
  6. GABAPENTIN [Concomitant]
  7. OXYBUTYNIN [Concomitant]
  8. ADVAIR DISKUS 100/50 [Concomitant]
  9. OXAZEPAM [Concomitant]
  10. FORTEO [Suspect]
     Indication: OSTEOPOROSIS
     Dosage: 20 UG, QD
     Route: 058
     Dates: start: 20091203
  11. GRAVOL TAB [Concomitant]

REACTIONS (2)
  - LIMB INJURY [None]
  - BACTERIAL DISEASE CARRIER [None]
